FAERS Safety Report 18557018 (Version 10)
Quarter: 2021Q3

REPORT INFORMATION
  Report Type: Spontaneous
  Country: US (occurrence: US)
  Receive Date: 20201129
  Receipt Date: 20210702
  Transmission Date: 20211014
  Serious: Yes (Other)
  Sender: FDA-Public Use
  Company Number: US-GLAXOSMITHKLINE-US2020AMR231874

PATIENT
  Sex: Female

DRUGS (5)
  1. ZEJULA [Suspect]
     Active Substance: NIRAPARIB
     Dosage: 200 MG, QD
  2. ZEJULA [Suspect]
     Active Substance: NIRAPARIB
     Dosage: 200 MG, QD
     Route: 048
  3. GAS?X [Suspect]
     Active Substance: DIMETHICONE
     Indication: FLATULENCE
     Dosage: UNK
  4. ZEJULA [Suspect]
     Active Substance: NIRAPARIB
     Dosage: 200 MG, QD
  5. ZEJULA [Suspect]
     Active Substance: NIRAPARIB
     Indication: OVARIAN CANCER
     Dosage: 200 MG, QD
     Route: 065
     Dates: start: 20201110

REACTIONS (11)
  - Staphylococcal infection [Unknown]
  - Back pain [Unknown]
  - Headache [Unknown]
  - Drug ineffective [Unknown]
  - Product dose omission issue [Unknown]
  - Constipation [Unknown]
  - Cough [Unknown]
  - Somnolence [Unknown]
  - Flatulence [Unknown]
  - Fatigue [Not Recovered/Not Resolved]
  - Sleep disorder [Unknown]
